FAERS Safety Report 6915378-4 (Version None)
Quarter: 2010Q3

REPORT INFORMATION
  Report Type: 
  Country: None (occurrence: None)
  Receive Date: 20100809
  Receipt Date: 20100608
  Transmission Date: 20110219
  Serious: No
  Sender: FDA-Public Use
  Company Number: US-ABBOTT-10P-163-0633082-00

PATIENT
  Age: 55 Year
  Sex: Female

DRUGS (3)
  1. DEPAKOTE ER [Suspect]
     Indication: MIGRAINE
     Dates: start: 20100210, end: 20100530
  2. RELPAX [Concomitant]
     Indication: MIGRAINE
  3. PREVACID [Concomitant]
     Indication: ULCER
     Dosage: DAILY

REACTIONS (1)
  - ALOPECIA [None]
